FAERS Safety Report 4819089-0 (Version None)
Quarter: 2005Q4

REPORT INFORMATION
  Report Type: 
  Country: None (occurrence: None)
  Receive Date: 20051103
  Receipt Date: 20050928
  Transmission Date: 20060501
  Serious: Yes (Hospitalization)
  Sender: FDA-Public Use
  Company Number: 2005SE05505

PATIENT
  Age: 73 Year
  Sex: Female

DRUGS (4)
  1. KENZEN 16 MG [Suspect]
     Indication: HYPERTENSION
     Route: 048
     Dates: end: 20050718
  2. VOLTAREN [Suspect]
     Indication: DRUG USE FOR UNKNOWN INDICATION
     Route: 048
  3. KARDEGIC [Suspect]
     Indication: DRUG USE FOR UNKNOWN INDICATION
     Route: 048
     Dates: end: 20050719
  4. IMOVANE [Concomitant]
     Indication: INSOMNIA
     Route: 048

REACTIONS (5)
  - DUODENAL ULCER [None]
  - HYPOKALAEMIA [None]
  - HYPONATRAEMIA [None]
  - METABOLIC ACIDOSIS [None]
  - RENAL TUBULAR DISORDER [None]
